FAERS Safety Report 8173633-7 (Version None)
Quarter: 2012Q1

REPORT INFORMATION
  Report Type: 
  Country: None (occurrence: None)
  Receive Date: 20120223
  Receipt Date: 20120214
  Transmission Date: 20120608
  Serious: Yes (Hospitalization, Other)
  Sender: FDA-Public Use
  Company Number: 2012020175

PATIENT
  Age: 45 Year
  Sex: Male

DRUGS (5)
  1. ZOLPIDEM [Suspect]
     Indication: INITIAL INSOMNIA
     Dosage: SEE IMAGE
  2. ESCITALOPRAM [Concomitant]
  3. PROPRANOLOL LONG-ACTING (PROPRANOLOL) [Concomitant]
  4. MIRTAZAPINE [Concomitant]
  5. LORAZEPAM [Concomitant]

REACTIONS (6)
  - DISORIENTATION [None]
  - DELIRIUM [None]
  - AGITATION [None]
  - INCORRECT DOSE ADMINISTERED [None]
  - REFUSAL OF TREATMENT BY PATIENT [None]
  - DRUG WITHDRAWAL SYNDROME [None]
